FAERS Safety Report 12392307 (Version 2)
Quarter: 2016Q2

REPORT INFORMATION
  Report Type: Spontaneous
  Country: BR (occurrence: BR)
  Receive Date: 20160523
  Receipt Date: 20160526
  Transmission Date: 20160815
  Serious: No
  Sender: FDA-Public Use
  Company Number: BR-009507513-1605BRA009683

PATIENT
  Sex: Female

DRUGS (1)
  1. NUVARING [Suspect]
     Active Substance: ETHINYL ESTRADIOL\ETONOGESTREL
     Dosage: UNK
     Route: 067
     Dates: end: 2016

REACTIONS (3)
  - Menorrhagia [Not Recovered/Not Resolved]
  - Metabolic surgery [Unknown]
  - Adenomyosis [Unknown]

NARRATIVE: CASE EVENT DATE: 201502
